FAERS Safety Report 6693408-5 (Version None)
Quarter: 2010Q2

REPORT INFORMATION
  Report Type: 
  Country: None (occurrence: None)
  Receive Date: 20100420
  Receipt Date: 20100408
  Transmission Date: 20101027
  Serious: Yes (Hospitalization, Congenital Anomaly, Other)
  Sender: FDA-Public Use
  Company Number: 028-20484-09020696

PATIENT
  Sex: Female
  Weight: 0.72 kg

DRUGS (8)
  1. INNOHEP [Suspect]
     Indication: PROPHYLAXIS
     Dosage: 14,000 IU/ML (1 IN 1 D), TRANSPLACENTAL
     Route: 064
     Dates: start: 20040113, end: 20040113
  2. HEPARIN [Concomitant]
  3. ERYTHROMYCIN [Concomitant]
  4. AMOXICILLIN [Concomitant]
  5. GRAVOL (DIMENHYDRINATE) (TABLETS) [Concomitant]
  6. ATASOL (PARACETAMOL) [Concomitant]
  7. PHENOBARBITAL TAB [Concomitant]
  8. MORPHINE [Concomitant]

REACTIONS (4)
  - CAESAREAN SECTION [None]
  - HEART DISEASE CONGENITAL [None]
  - MATERNAL DRUGS AFFECTING FOETUS [None]
  - PREMATURE BABY [None]
